FAERS Safety Report 5945225-9 (Version None)
Quarter: 2008Q4

REPORT INFORMATION
  Report Type: 
  Country: None (occurrence: None)
  Receive Date: 20081107
  Receipt Date: 20081029
  Transmission Date: 20090506
  Serious: Yes (Other)
  Sender: FDA-Public Use
  Company Number: FR-ASTRAZENECA-2008CG01592

PATIENT
  Age: 76 Year
  Sex: Female

DRUGS (5)
  1. CRESTOR [Suspect]
     Indication: DYSLIPIDAEMIA
     Route: 048
     Dates: start: 20050101, end: 20081001
  2. SALAZOPYRINE [Concomitant]
     Indication: PSORIATIC ARTHROPATHY
     Route: 048
  3. TEVETEN [Concomitant]
     Route: 048
  4. KARDEGIC [Concomitant]
     Route: 048
  5. MONO-TILDIEM [Concomitant]
     Route: 048

REACTIONS (1)
  - PULMONARY FIBROSIS [None]
